FAERS Safety Report 6129673-2 (Version None)
Quarter: 2009Q1

REPORT INFORMATION
  Report Type: 
  Country: None (occurrence: None)
  Receive Date: 20090323
  Receipt Date: 20090323
  Transmission Date: 20090719
  Serious: Yes (Life-Threatening)
  Sender: FDA-Public Use
  Company Number: None

PATIENT
  Sex: Female
  Weight: 76.6579 kg

DRUGS (1)
  1. MIRAPEX [Suspect]
     Indication: ESSENTIAL TREMOR
     Dosage: 0.25MG ONCE DAILY
     Dates: start: 20050930, end: 20080601

REACTIONS (9)
  - ABNORMAL BEHAVIOUR [None]
  - COMPULSIVE SHOPPING [None]
  - EATING DISORDER [None]
  - FEAR [None]
  - FEELING ABNORMAL [None]
  - FOOD CRAVING [None]
  - HYPERPHAGIA [None]
  - OBSESSIVE-COMPULSIVE DISORDER [None]
  - WEIGHT INCREASED [None]
